FAERS Safety Report 25204235 (Version 3)
Quarter: 2025Q2

REPORT INFORMATION
  Report Type: Spontaneous
  Country: US (occurrence: US)
  Receive Date: 20250416
  Receipt Date: 20250611
  Transmission Date: 20250716
  Serious: No
  Sender: GLAXOSMITHKLINE
  Company Number: US-GSK-US2025032228

PATIENT
  Sex: Male
  Weight: 118 kg

DRUGS (1)
  1. NUCALA [Suspect]
     Active Substance: MEPOLIZUMAB
     Indication: Asthma
     Dosage: 100 MG/ML, MO

REACTIONS (4)
  - Dyspnoea [Recovered/Resolved]
  - Asthma [Unknown]
  - Hyposmia [Unknown]
  - Product dose omission issue [Unknown]
